FAERS Safety Report 25760039 (Version 3)
Quarter: 2025Q3

REPORT INFORMATION
  Report Type: Spontaneous
  Country: EU (occurrence: EU)
  Receive Date: 20250904
  Receipt Date: 20250917
  Transmission Date: 20251021
  Serious: Yes (Other)
  Sender: MYLAN
  Company Number: EU-MYLANLABS-2025M1074097

PATIENT
  Age: 72 Year
  Sex: Female

DRUGS (21)
  1. ROPIVACAINE [Suspect]
     Active Substance: ROPIVACAINE
     Indication: Anaesthesia
  2. ROPIVACAINE [Suspect]
     Active Substance: ROPIVACAINE
  3. ROPIVACAINE [Suspect]
     Active Substance: ROPIVACAINE
  4. TRANEXAMIC ACID [Suspect]
     Active Substance: TRANEXAMIC ACID
     Indication: Premedication
  5. TRANEXAMIC ACID [Suspect]
     Active Substance: TRANEXAMIC ACID
  6. DEXAMETHASONE [Suspect]
     Active Substance: DEXAMETHASONE
     Indication: Premedication
  7. DEXAMETHASONE [Suspect]
     Active Substance: DEXAMETHASONE
  8. ONDANSETRON [Suspect]
     Active Substance: ONDANSETRON
     Indication: Enterocolitis
  9. ONDANSETRON [Suspect]
     Active Substance: ONDANSETRON
  10. ACETAMINOPHEN [Suspect]
     Active Substance: ACETAMINOPHEN
     Indication: Enterocolitis
  11. PANTOPRAZOLE [Suspect]
     Active Substance: PANTOPRAZOLE
     Indication: Enterocolitis
  12. CEFAZOLIN [Suspect]
     Active Substance: CEFAZOLIN
     Indication: Antibiotic prophylaxis
  13. INTRALIPID [Suspect]
     Active Substance: EGG PHOSPHOLIPIDS\GLYCERIN\SOYBEAN OIL
     Indication: Drug therapy
  14. INTRALIPID [Suspect]
     Active Substance: EGG PHOSPHOLIPIDS\GLYCERIN\SOYBEAN OIL
  15. DROPERIDOL [Suspect]
     Active Substance: DROPERIDOL
     Indication: Enterocolitis
  16. MIDAZOLAM [Concomitant]
     Active Substance: MIDAZOLAM
     Indication: Anxiolytic therapy
  17. VALPROATE SODIUM [Concomitant]
     Active Substance: VALPROATE SODIUM
     Indication: Generalised tonic-clonic seizure
  18. DEXMEDETOMIDINE [Concomitant]
     Active Substance: DEXMEDETOMIDINE
     Indication: Sedation
  19. MEPIVACAINE [Concomitant]
     Active Substance: MEPIVACAINE HYDROCHLORIDE
     Indication: Anaesthesia
  20. MEPIVACAINE [Concomitant]
     Active Substance: MEPIVACAINE HYDROCHLORIDE
     Indication: Nerve block
  21. PROPOFOL [Concomitant]
     Active Substance: PROPOFOL
     Indication: Anaesthesia

REACTIONS (5)
  - Enterocolitis [Unknown]
  - Drug ineffective [Unknown]
  - Malaise [Unknown]
  - Vomiting [Unknown]
  - Off label use [Unknown]

NARRATIVE: CASE EVENT DATE: 20240101
